FAERS Safety Report 20730090 (Version 2)
Quarter: 2022Q2

REPORT INFORMATION
  Report Type: Spontaneous
  Country: US (occurrence: US)
  Receive Date: 20220420
  Receipt Date: 20220524
  Transmission Date: 20220721
  Serious: No
  Sender: FDA-Public Use
  Company Number: US-PFIZER INC-202200458250

PATIENT
  Age: 91 Year
  Sex: Female
  Weight: 72.12 kg

DRUGS (1)
  1. XALATAN [Suspect]
     Active Substance: LATANOPROST
     Indication: Glaucoma
     Dosage: 1 DROP, 1X/DAY (ONE DROP IN EFFECTED EYE IN THE EVENING)

REACTIONS (3)
  - Eye disorder [Unknown]
  - Poor quality product administered [Unknown]
  - Product packaging quantity issue [Unknown]
